FAERS Safety Report 4978544-3 (Version None)
Quarter: 2006Q1

REPORT INFORMATION
  Report Type: 
  Country: None (occurrence: None)
  Receive Date: 20060216
  Receipt Date: 20051110
  Transmission Date: 20060701
  Serious: No
  Sender: FDA-Public Use
  Company Number: TPA2005A01476

PATIENT
  Sex: Male

DRUGS (3)
  1. ROZEREM [Suspect]
     Dosage: 8 MG, PER ORAL
     Route: 048
  2. DEXTROAMPHETAMINE- (DEXAMFETAMINE) (40 MILLIGRAM) [Concomitant]
  3. XANAX [Concomitant]

REACTIONS (1)
  - COPROLALIA [None]
